FAERS Safety Report 9421291 (Version 1)
Quarter: 2013Q3

REPORT INFORMATION
  Report Type: Report from Study
  Country: US (occurrence: US)
  Receive Date: 20130725
  Receipt Date: 20130725
  Transmission Date: 20140515
  Serious: Yes (Other)
  Sender: FDA-Public Use
  Company Number: US-ABBOTT-13P-163-1121981-00

PATIENT
  Age: 60 Year
  Sex: Male

DRUGS (4)
  1. HUMIRA [Suspect]
     Indication: PSORIATIC ARTHROPATHY
     Dates: start: 20130327
  2. COUMADIN [Concomitant]
     Indication: AORTIC VALVE REPLACEMENT
     Dosage: 7.5MG 3 DAYS A WEEK, 5MG 4 DAYS A WEEK
  3. DEPAKOTE [Concomitant]
     Indication: CONVULSION
     Route: 048
  4. AMBIEN CR [Concomitant]
     Indication: INSOMNIA
     Dosage: AT BEDTIME

REACTIONS (1)
  - Convulsion [Not Recovered/Not Resolved]
